FAERS Safety Report 6298067-1 (Version None)
Quarter: 2009Q3

REPORT INFORMATION
  Report Type: 
  Country: None (occurrence: None)
  Receive Date: 20090804
  Receipt Date: 20090804
  Transmission Date: 20100115
  Serious: Yes (Disabling)
  Sender: FDA-Public Use
  Company Number: None

PATIENT
  Age: 33 Year
  Sex: Female
  Weight: 53.5244 kg

DRUGS (1)
  1. MIRENA [Suspect]
     Indication: CONTRACEPTION
     Dates: start: 20080219

REACTIONS (10)
  - AGGRESSION [None]
  - ANXIETY [None]
  - CYST RUPTURE [None]
  - DEPRESSION [None]
  - FIBROMYALGIA [None]
  - HAEMORRHAGE [None]
  - MOOD SWINGS [None]
  - PAIN [None]
  - SUPPRESSED LACTATION [None]
  - UTERINE CYST [None]
